FAERS Safety Report 9999989 (Version 1)
Quarter: 2014Q1

REPORT INFORMATION
  Report Type: Spontaneous
  Country: FR (occurrence: FR)
  Receive Date: 20140312
  Receipt Date: 20140312
  Transmission Date: 20141002
  Serious: Yes (Hospitalization)
  Sender: FDA-Public Use
  Company Number: PHHY2014FR027720

PATIENT
  Age: 67 Year
  Sex: Male

DRUGS (5)
  1. TAMSULOSIN SANDOZ [Suspect]
     Dosage: 1 DF, ONCE/SINGLE
     Route: 048
     Dates: start: 20070910
  2. PRETERAX [Concomitant]
     Dosage: UNK UKN, Q18H
  3. CRESTOR [Concomitant]
  4. PERMIXON [Concomitant]
     Dosage: 2 DF, QD
  5. INEXIUM//ESOMEPRAZOLE MAGNESIUM [Concomitant]

REACTIONS (2)
  - Malaise [Recovered/Resolved]
  - Syncope [Recovered/Resolved]
